FAERS Safety Report 21455146 (Version 2)
Quarter: 2022Q4

REPORT INFORMATION
  Report Type: Spontaneous
  Country: US (occurrence: US)
  Receive Date: 20221014
  Receipt Date: 20221208
  Transmission Date: 20230112
  Serious: No
  Sender: FDA-Public Use
  Company Number: US-JNJFOC-20221021720

PATIENT

DRUGS (2)
  1. INVEGA [Suspect]
     Active Substance: PALIPERIDONE
     Indication: Schizophrenia
     Route: 048
     Dates: end: 202207
  2. INVEGA [Suspect]
     Active Substance: PALIPERIDONE
     Indication: Hallucination, auditory

REACTIONS (2)
  - Drug ineffective [Unknown]
  - Amnesia [Not Recovered/Not Resolved]
